FAERS Safety Report 8180106-4 (Version None)
Quarter: 2012Q1

REPORT INFORMATION
  Report Type: 
  Country: None (occurrence: None)
  Receive Date: 20120302
  Receipt Date: 20120302
  Transmission Date: 20120608
  Serious: Yes (Other)
  Sender: FDA-Public Use
  Company Number: None

PATIENT
  Sex: Male
  Weight: 110.67 kg

DRUGS (11)
  1. ASPIRIN [Concomitant]
  2. LISINOPRIL [Concomitant]
  3. IMDUR [Concomitant]
  4. LOVASTATIN [Concomitant]
  5. PLAVIX [Concomitant]
  6. TERAZOSIN HCL [Concomitant]
  7. JANUVIA [Suspect]
     Indication: DIABETES MELLITUS
     Dosage: 100.0 MG
     Route: 048
     Dates: start: 20120225, end: 20120229
  8. AVODART [Concomitant]
  9. METOPROLOL TARTRATE [Concomitant]
  10. METFORMIN HCL [Concomitant]
  11. HYDROCHLOROTHIAZIDE [Concomitant]

REACTIONS (6)
  - NAUSEA [None]
  - WRONG DRUG ADMINISTERED [None]
  - PRODUCT CONTAMINATION [None]
  - ABDOMINAL DISCOMFORT [None]
  - VOMITING [None]
  - DRUG DISPENSING ERROR [None]
